FAERS Safety Report 5541505-X (Version None)
Quarter: 2007Q4

REPORT INFORMATION
  Report Type: 
  Country: None (occurrence: None)
  Receive Date: 20071210
  Receipt Date: 20071205
  Transmission Date: 20080405
  Serious: Yes (Death)
  Sender: FDA-Public Use
  Company Number: JP-BRISTOL-MYERS SQUIBB COMPANY-13991708

PATIENT
  Age: 73 Year
  Sex: Male

DRUGS (2)
  1. TAXOL [Suspect]
     Indication: LUNG NEOPLASM MALIGNANT
     Dosage: THERAPY DURATION- 2 DAYS
     Route: 041
     Dates: start: 20060411, end: 20060510
  2. PARAPLATIN [Suspect]
     Indication: LUNG NEOPLASM MALIGNANT
     Dosage: THERAPY DURATION- 2 DAYS
     Route: 041
     Dates: start: 20060411, end: 20060510

REACTIONS (1)
  - INTERSTITIAL LUNG DISEASE [None]
